FAERS Safety Report 6968963-8 (Version None)
Quarter: 2010Q3

REPORT INFORMATION
  Report Type: 
  Country: None (occurrence: None)
  Receive Date: 20100907
  Receipt Date: 20100824
  Transmission Date: 20110219
  Serious: Yes (Disabling)
  Sender: FDA-Public Use
  Company Number: US-SANOFI-AVENTIS-2010SA051206

PATIENT
  Age: 66 Year
  Sex: Male

DRUGS (6)
  1. LANTUS [Suspect]
     Indication: TYPE 2 DIABETES MELLITUS
     Dosage: DOSE:30 UNIT(S)
     Route: 058
     Dates: start: 20080101, end: 20100101
  2. LANTUS [Suspect]
     Dosage: DOSE:20 UNIT(S)
     Route: 058
     Dates: start: 20100101
  3. ALL OTHER NON-THERAPEUTIC PRODUCTS [Suspect]
     Route: 065
     Dates: start: 20100101, end: 20100101
  4. HUMALOG [Concomitant]
     Dosage: PER SLIDING SCALE WITH MEALS
  5. NEURONTIN [Concomitant]
  6. ANALGESICS [Concomitant]

REACTIONS (3)
  - BLOOD GLUCOSE FLUCTUATION [None]
  - FATIGUE [None]
  - INJECTION SITE PAIN [None]
